FAERS Safety Report 9563067 (Version 1)
Quarter: 2013Q3

REPORT INFORMATION
  Report Type: Spontaneous
  Country: PR (occurrence: PR)
  Receive Date: 20130927
  Receipt Date: 20130927
  Transmission Date: 20140515
  Serious: No
  Sender: FDA-Public Use
  Company Number: PR-BRISTOL-MYERS SQUIBB COMPANY-16942062

PATIENT
  Sex: Male

DRUGS (3)
  1. ONGLYZA TABS [Suspect]
  2. HYZAAR [Concomitant]
  3. LIPITOR [Concomitant]

REACTIONS (1)
  - Oedema peripheral [Unknown]
